FAERS Safety Report 10254567 (Version 1)
Quarter: 2014Q2

REPORT INFORMATION
  Report Type: Spontaneous
  Country: US (occurrence: None)
  Receive Date: 20140620
  Receipt Date: 20140620
  Transmission Date: 20141212
  Serious: Yes (Other)
  Sender: FDA-Public Use
  Company Number: None

PATIENT
  Age: 46 Year
  Sex: Female
  Weight: 61.24 kg

DRUGS (4)
  1. BENLYSTA [Suspect]
     Indication: SYSTEMIC LUPUS ERYTHEMATOSUS
     Dosage: 600, Q 4 WEEKS, INTRAVENOUS
     Route: 042
     Dates: start: 20111121, end: 20140501
  2. PLAQUENIL [Concomitant]
  3. PREDNISONE [Concomitant]
  4. TACROLIMUS TOPICA [Concomitant]

REACTIONS (1)
  - Renal cell carcinoma [None]
